FAERS Safety Report 8317563-6 (Version None)
Quarter: 2012Q2

REPORT INFORMATION
  Report Type: 
  Country: None (occurrence: None)
  Receive Date: 20120427
  Receipt Date: 20120424
  Transmission Date: 20120825
  Serious: Yes (Other)
  Sender: FDA-Public Use
  Company Number: BR-AMGEN-BRACT2012024395

PATIENT
  Age: 59 Year
  Sex: Male

DRUGS (8)
  1. DENOSUMAB [Suspect]
     Indication: PROSTATE CANCER
     Dosage: UNK UNK, QMO
     Route: 058
     Dates: start: 20100324
  2. VITAMIN D [Concomitant]
     Dosage: UNK
     Route: 048
     Dates: start: 20080619, end: 20111011
  3. CAPTOPRIL [Concomitant]
     Dosage: 25 MG, BID
     Route: 048
     Dates: start: 20080603
  4. DICLOFENAC [Concomitant]
     Dosage: 50 MG, BID
     Route: 048
     Dates: start: 20110413, end: 20110421
  5. PREDNISONE [Concomitant]
     Indication: PROSTATE CANCER
     Dosage: 5 MG, BID
     Dates: start: 20100913, end: 20111030
  6. TAXOTERE [Concomitant]
     Indication: PROSTATE CANCER
     Dosage: 75 MG/M2, UNK
     Dates: start: 20100913, end: 20110202
  7. CALCIUM [Concomitant]
     Dosage: UNK
     Route: 048
     Dates: start: 20080619, end: 20111011
  8. DESTILBENOL [Concomitant]
     Indication: PROSTATE CANCER
     Dosage: 3 MG, UNK
     Dates: start: 20091214, end: 20100908

REACTIONS (3)
  - EXPOSED BONE IN JAW [None]
  - APICAL GRANULOMA [None]
  - BONE LESION [None]
